FAERS Safety Report 7866986-8 (Version None)
Quarter: 2011Q4

REPORT INFORMATION
  Report Type: 
  Country: None (occurrence: None)
  Receive Date: 20111028
  Receipt Date: 20111025
  Transmission Date: 20120403
  Serious: Yes (Other)
  Sender: FDA-Public Use
  Company Number: AU-JNJFOC-20110900244

PATIENT
  Sex: Male
  Weight: 107 kg

DRUGS (3)
  1. STELARA [Suspect]
     Route: 058
     Dates: start: 20110513
  2. STELARA [Suspect]
     Route: 058
     Dates: start: 20110830
  3. STELARA [Suspect]
     Indication: PSORIASIS
     Route: 058
     Dates: start: 20110613

REACTIONS (2)
  - DRUG DISPENSING ERROR [None]
  - UNDERDOSE [None]
